FAERS Safety Report 25999210 (Version 2)
Quarter: 2025Q4

REPORT INFORMATION
  Report Type: Spontaneous
  Country: US (occurrence: US)
  Receive Date: 20251105
  Receipt Date: 20251114
  Transmission Date: 20260118
  Serious: No
  Sender: ROCHE
  Company Number: US-ROCHE-10000422563

PATIENT
  Sex: Female

DRUGS (1)
  1. XOLAIR [Suspect]
     Active Substance: OMALIZUMAB
     Indication: Mechanical urticaria
     Dosage: STRENGTH: 150MG/ML
     Route: 058
     Dates: start: 202508

REACTIONS (1)
  - Urticaria [Unknown]
